FAERS Safety Report 9832710 (Version 2)
Quarter: 2014Q2

REPORT INFORMATION
  Report Type: Spontaneous
  Country: GB (occurrence: GB)
  Receive Date: 20140121
  Receipt Date: 20140401
  Transmission Date: 20141212
  Serious: Yes (Death)
  Sender: FDA-Public Use
  Company Number: GB-WATSON-2014-00171

PATIENT
  Age: 23 Year
  Sex: Female
  Weight: 74 kg

DRUGS (4)
  1. CITALOPRAM (UNKNOWN) [Suspect]
     Indication: DEPRESSION
     Dosage: 10 MG, DAILY
     Route: 048
     Dates: start: 20131014, end: 20131022
  2. AMITRIPTYLINE [Concomitant]
     Indication: IRRITABLE BOWEL SYNDROME
     Dosage: 30 MG, QHS
     Route: 048
     Dates: start: 200810
  3. YASMIN [Concomitant]
     Indication: ORAL CONTRACEPTION
     Dosage: 1 DF, DAILY; FOR 21 DAYS
     Route: 048
     Dates: start: 2008
  4. SERTRALINE [Concomitant]
     Indication: DEPRESSION
     Dosage: 50 MG, TOTAL
     Route: 048
     Dates: start: 20130924

REACTIONS (1)
  - Completed suicide [Fatal]
